FAERS Safety Report 15464782 (Version 1)
Quarter: 2018Q4

REPORT INFORMATION
  Report Type: Spontaneous
  Country: US (occurrence: US)
  Receive Date: 20181004
  Receipt Date: 20181004
  Transmission Date: 20190204
  Serious: No
  Sender: FDA-Public Use
  Company Number: US-PFIZER INC-2018401453

PATIENT
  Age: 73 Year

DRUGS (1)
  1. LYRICA [Suspect]
     Active Substance: PREGABALIN
     Dosage: 50 MG, 2X/DAY

REACTIONS (3)
  - Rash [Not Recovered/Not Resolved]
  - Acarodermatitis [Unknown]
  - Burning sensation [Unknown]
